FAERS Safety Report 14354707 (Version 1)
Quarter: 2018Q1

REPORT INFORMATION
  Report Type: Spontaneous
  Country: US (occurrence: US)
  Receive Date: 20180105
  Receipt Date: 20180105
  Transmission Date: 20180509
  Serious: Yes (Other)
  Sender: FDA-Public Use
  Company Number: US-APOTEX-2018AP005171

PATIENT
  Age: 19 Year
  Sex: Female

DRUGS (15)
  1. METHADONE [Suspect]
     Active Substance: METHADONE HYDROCHLORIDE
     Indication: CANCER PAIN
     Dosage: 10 MG, TID
     Route: 065
  2. BACLOFEN. [Concomitant]
     Active Substance: BACLOFEN
     Indication: CANCER PAIN
     Dosage: 10 MG, TID
     Route: 065
  3. DIPHENHYDRAMINE. [Concomitant]
     Active Substance: DIPHENHYDRAMINE
     Indication: CANCER PAIN
     Dosage: UNK
     Route: 042
  4. PROMETHAZINE [Concomitant]
     Active Substance: PROMETHAZINE\PROMETHAZINE HYDROCHLORIDE
     Indication: CANCER PAIN
     Route: 065
  5. HYDROMORPHONE [Suspect]
     Active Substance: HYDROMORPHONE
     Indication: CANCER PAIN
     Route: 042
  6. METHADONE [Suspect]
     Active Substance: METHADONE HYDROCHLORIDE
     Dosage: 12 MG, TID
     Route: 065
  7. FENTANYL. [Suspect]
     Active Substance: FENTANYL
     Indication: CANCER PAIN
     Dosage: 50 ?G, UNK
     Route: 062
  8. DIAZEPAM. [Concomitant]
     Active Substance: DIAZEPAM
     Indication: CANCER PAIN
     Dosage: 2-4 MG EVERY 6 HOURS
     Route: 065
  9. MORPHINE [Suspect]
     Active Substance: MORPHINE
     Indication: CANCER PAIN
     Dosage: 15 MG, Q.4H.
     Route: 065
  10. KETAMINE [Concomitant]
     Active Substance: KETAMINE
     Indication: CANCER PAIN
     Dosage: 0.2 MG/KG/H GTT
     Route: 065
  11. CLONIDINE. [Concomitant]
     Active Substance: CLONIDINE
     Indication: CANCER PAIN
     Dosage: 0.1 MG, UNK
     Route: 062
  12. MORPHINE [Suspect]
     Active Substance: MORPHINE
     Dosage: 400 MG, DAILY
     Route: 065
  13. SERTRALINE [Concomitant]
     Active Substance: SERTRALINE HYDROCHLORIDE
     Indication: CANCER PAIN
     Dosage: 125 MG, QID
     Route: 065
  14. HYDROMORPHONE [Suspect]
     Active Substance: HYDROMORPHONE
     Dosage: 6 MG, Q.4H.
     Route: 048
  15. PREGABALIN. [Concomitant]
     Active Substance: PREGABALIN
     Indication: CANCER PAIN
     Dosage: 150 MG, TID
     Route: 065

REACTIONS (2)
  - Hyperaesthesia [Recovering/Resolving]
  - Drug ineffective [Unknown]
